FAERS Safety Report 5501677-X (Version None)
Quarter: 2007Q4

REPORT INFORMATION
  Report Type: 
  Country: None (occurrence: None)
  Receive Date: 20071026
  Receipt Date: 20071026
  Transmission Date: 20080405
  Serious: Yes (Death)
  Sender: FDA-Public Use
  Company Number: None

PATIENT
  Age: 26 Year
  Sex: Female
  Weight: 61.2356 kg

DRUGS (1)
  1. AMBIEN [Suspect]
     Indication: INSOMNIA
     Dosage: 10MG AT NIGHT
     Dates: start: 20060601, end: 20070616

REACTIONS (2)
  - ROAD TRAFFIC ACCIDENT [None]
  - SOMNAMBULISM [None]
